FAERS Safety Report 9466610 (Version 1)
Quarter: 2013Q3

REPORT INFORMATION
  Report Type: Spontaneous
  Country: DK (occurrence: DK)
  Receive Date: 20130820
  Receipt Date: 20130820
  Transmission Date: 20140515
  Serious: Yes (Hospitalization, Congenital Anomaly)
  Sender: FDA-Public Use
  Company Number: PHHY2013DK087437

PATIENT
  Age: 0 Year
  Sex: Male
  Weight: 3.4 kg

DRUGS (5)
  1. ELTROXIN [Suspect]
     Dosage: 50 UG, QD, MATERNAL DOSE
     Route: 064
     Dates: start: 200610
  2. LAMICTAL [Suspect]
     Dosage: UNK UKN, UNK
     Route: 064
     Dates: start: 200407
  3. SEROQUEL [Suspect]
     Dosage: 50 MG, QD, MATERNAL DOSE
     Route: 064
     Dates: start: 20130101, end: 20130502
  4. LINDYNETTE [Suspect]
     Dosage: 1 DF, QD, MATERNAL DOSE
     Route: 064
     Dates: end: 20130430
  5. NORITREN [Suspect]
     Dosage: 50 MG, TID, MATERNAL DOSE
     Route: 064
     Dates: start: 20040701

REACTIONS (4)
  - Hemivertebra [Not Recovered/Not Resolved]
  - Epispadias [Not Recovered/Not Resolved]
  - Anomaly of external ear congenital [Not Recovered/Not Resolved]
  - Exposure during pregnancy [Recovered/Resolved]
